FAERS Safety Report 26021261 (Version 2)
Quarter: 2025Q4

REPORT INFORMATION
  Report Type: Spontaneous
  Country: US (occurrence: US)
  Receive Date: 20251110
  Receipt Date: 20251112
  Transmission Date: 20260117
  Serious: Yes (Hospitalization, Other)
  Sender: PFIZER
  Company Number: US-PFIZER INC-PV202500129781

PATIENT
  Age: 17 Year
  Sex: Female

DRUGS (6)
  1. ACETYLCYSTEINE [Suspect]
     Active Substance: ACETYLCYSTEINE
     Indication: Overdose
     Dosage: UNK
     Route: 042
  2. ACETYLCYSTEINE [Suspect]
     Active Substance: ACETYLCYSTEINE
     Indication: Acute kidney injury
  3. ACETYLCYSTEINE [Suspect]
     Active Substance: ACETYLCYSTEINE
     Indication: Acute hepatic failure
  4. VITAMIN K [Concomitant]
     Active Substance: PHYTONADIONE
     Indication: Overdose
     Dosage: UNK
  5. VITAMIN K [Concomitant]
     Active Substance: PHYTONADIONE
     Indication: Acute hepatic failure
  6. VITAMIN K [Concomitant]
     Active Substance: PHYTONADIONE
     Indication: Acute kidney injury

REACTIONS (2)
  - Haemolysis [Recovered/Resolved]
  - Off label use [Unknown]
